FAERS Safety Report 9131321 (Version 1)
Quarter: 2013Q1

REPORT INFORMATION
  Report Type: Spontaneous
  Country: US (occurrence: US)
  Receive Date: 20130301
  Receipt Date: 20130301
  Transmission Date: 20140127
  Serious: No
  Sender: FDA-Public Use
  Company Number: US-BAYER-2013-024114

PATIENT
  Age: 75 Year
  Sex: Female
  Weight: 45 kg

DRUGS (15)
  1. ALEVE CAPLET/TABLET,MIDOL EXTENDED RELIEF CAPLET [Suspect]
     Indication: ANALGESIC THERAPY
     Dosage: 1 DF, BID
     Route: 048
     Dates: start: 20121226, end: 20130213
  2. BAYER ASPIRIN REGIMEN ADULT LOW STRENGTH [Concomitant]
     Indication: ISCHAEMIC HEART DISEASE PROPHYLAXIS
  3. LISINOPRIL [Concomitant]
  4. CARVEDILOL [Concomitant]
  5. ALENDRONATE SODIUM [Concomitant]
  6. LORAZEPAM [Concomitant]
  7. HERBS [Concomitant]
  8. COLACE [Concomitant]
  9. FISH OIL [Concomitant]
  10. PROBIOTICS [Concomitant]
  11. RED YEAST RICE [Concomitant]
  12. MULTIVITAMIN [Concomitant]
  13. VITAMIN D [Concomitant]
  14. VITAMIN C [Concomitant]
  15. VITAMIN B6 [Concomitant]

REACTIONS (5)
  - Incorrect drug administration duration [None]
  - Dyspepsia [Recovered/Resolved]
  - Nausea [Recovered/Resolved]
  - Burning sensation [Recovered/Resolved]
  - Eructation [Recovered/Resolved]
